FAERS Safety Report 4943404-0 (Version None)
Quarter: 2006Q1

REPORT INFORMATION
  Report Type: 
  Country: None (occurrence: None)
  Receive Date: 20060314
  Receipt Date: 20060306
  Transmission Date: 20060701
  Serious: Yes (Other)
  Sender: FDA-Public Use
  Company Number: GB-AVENTIS-200612307GDDC

PATIENT
  Age: 66 Year
  Sex: Female

DRUGS (2)
  1. NASACORT [Suspect]
     Indication: CONTUSION
     Route: 045
  2. THYROID TAB [Concomitant]

REACTIONS (8)
  - ADRENAL INSUFFICIENCY [None]
  - ASTHENIA [None]
  - BODY TEMPERATURE DECREASED [None]
  - FEELING COLD [None]
  - HEAT RASH [None]
  - TEMPERATURE INTOLERANCE [None]
  - TREMOR [None]
  - WEIGHT INCREASED [None]
